FAERS Safety Report 5218241-2 (Version None)
Quarter: 2007Q1

REPORT INFORMATION
  Report Type: 
  Country: None (occurrence: None)
  Receive Date: 20061130
  Receipt Date: 20060505
  Transmission Date: 20070707
  Serious: Yes (Hospitalization)
  Sender: FDA-Public Use
  Company Number: US_0509121536

PATIENT
  Age: 74 Year
  Sex: Female
  Weight: 94.3 kg

DRUGS (8)
  1. ZYPREXA [Suspect]
     Indication: BIPOLAR I DISORDER
     Dosage: SEE IMAGE
     Dates: start: 20001030, end: 20030106
  2. ZYPREXA [Suspect]
     Indication: BIPOLAR I DISORDER
     Dosage: SEE IMAGE
     Dates: start: 20030106
  3. RISPERIDONE [Concomitant]
  4. SEROQUEL [Concomitant]
  5. THORAZINE [Concomitant]
  6. HALDOL SOLUTAB [Concomitant]
  7. BENADRYL (AMMONIUM CHLORIDE, DIPHENHYDRAMINE HYDROCHLORIDE, MENTHOL, S [Concomitant]
  8. GLUCOVANCE [Concomitant]

REACTIONS (6)
  - BLOOD CHOLESTEROL ABNORMAL [None]
  - BLOOD TRIGLYCERIDES INCREASED [None]
  - DIABETES MELLITUS NON-INSULIN-DEPENDENT [None]
  - HYPERTENSION [None]
  - POLYDIPSIA [None]
  - WEIGHT INCREASED [None]
